FAERS Safety Report 15720249 (Version 2)
Quarter: 2018Q4

REPORT INFORMATION
  Report Type: Spontaneous
  Country: ES (occurrence: ES)
  Receive Date: 20181213
  Receipt Date: 20181219
  Transmission Date: 20190205
  Serious: Yes (Disabling, Other)
  Sender: FDA-Public Use
  Company Number: PHHY2018ES060267

PATIENT
  Age: 65 Year
  Sex: Male

DRUGS (16)
  1. PARACETAMOL [Suspect]
     Active Substance: ACETAMINOPHEN
     Indication: MYALGIA
  2. SIMVASTATIN. [Interacting]
     Active Substance: SIMVASTATIN
     Dosage: 20 MG, UNK
     Route: 048
     Dates: start: 2017
  3. SIMVASTATIN. [Interacting]
     Active Substance: SIMVASTATIN
     Dosage: 20 MG, QD
     Route: 048
     Dates: start: 2016
  4. OMEPRAZOLE. [Concomitant]
     Active Substance: OMEPRAZOLE
     Indication: GASTROOESOPHAGEAL REFLUX DISEASE
     Dosage: 20 MG, QD (1-0-0)
     Route: 048
  5. PARACETAMOL [Suspect]
     Active Substance: ACETAMINOPHEN
     Indication: PAIN IN EXTREMITY
     Dosage: 1 G, UNK (IN DEMAND)
     Route: 065
  6. TICLODIPINE [Concomitant]
     Indication: INFARCTION
  7. SIMVASTATIN. [Interacting]
     Active Substance: SIMVASTATIN
     Indication: HYPERCHOLESTEROLAEMIA
     Dosage: 20 MG, QHS (0-0-1)
     Route: 048
     Dates: start: 2016
  8. AMIODARONE [Interacting]
     Active Substance: AMIODARONE
     Indication: SINUS ARRHYTHMIA
     Dosage: 300 MG, QD (0,5-0,5-0)
     Route: 048
     Dates: start: 2018
  9. BISOPROLOL [Concomitant]
     Active Substance: BISOPROLOL
     Indication: ARRHYTHMIA
  10. AMIODARONE [Interacting]
     Active Substance: AMIODARONE
     Indication: ARRHYTHMIA
     Dosage: 75 MG, BID
     Route: 048
  11. ACETYLSALICYLIC ACID [Concomitant]
     Active Substance: ASPIRIN
     Indication: MYOCARDIAL INFARCTION
     Dosage: 100 MG, QD (0-1-0)
     Route: 048
     Dates: start: 2017
  12. ACETYLSALICYLIC ACID [Concomitant]
     Active Substance: ASPIRIN
     Indication: INFARCTION
     Dosage: 10 MG, UNK (0-1-0)
     Route: 065
  13. BISOPROLOL [Concomitant]
     Active Substance: BISOPROLOL
     Indication: HYPERCHOLESTEROLAEMIA
  14. SIMVASTATIN. [Interacting]
     Active Substance: SIMVASTATIN
     Dosage: 20 MG, UNK (0-0-1)
     Route: 065
  15. TICLODIPINE [Concomitant]
     Indication: MYOCARDIAL INFARCTION
     Dosage: 250 MG, QD (0-1-0)
     Route: 048
     Dates: start: 2017
  16. BISOPROLOL [Concomitant]
     Active Substance: BISOPROLOL
     Indication: SINUS ARRHYTHMIA
     Dosage: 5 MG, QD (1-0-0)
     Route: 048

REACTIONS (4)
  - Myalgia [Recovered/Resolved]
  - Myalgia [Recovered/Resolved]
  - Drug ineffective [Recovered/Resolved]
  - Drug interaction [Recovered/Resolved]

NARRATIVE: CASE EVENT DATE: 2017
